FAERS Safety Report 7152836-4 (Version None)
Quarter: 2010Q4

REPORT INFORMATION
  Report Type: 
  Country: None (occurrence: None)
  Receive Date: 20101213
  Receipt Date: 20101206
  Transmission Date: 20110411
  Serious: Yes (Death, Hospitalization, Other)
  Sender: FDA-Public Use
  Company Number: PHHY2010BR82680

PATIENT
  Sex: Male

DRUGS (1)
  1. DIOVAN [Suspect]
     Indication: HYPERTENSION
     Dosage: 1 TABLET A DAY
     Route: 048

REACTIONS (5)
  - METASTASES TO LUNG [None]
  - METASTASIS [None]
  - MULTI-ORGAN FAILURE [None]
  - TESTIS CANCER [None]
  - TUMOUR EXCISION [None]
